FAERS Safety Report 16178624 (Version 1)
Quarter: 2019Q2

REPORT INFORMATION
  Report Type: Spontaneous
  Country: FR (occurrence: FR)
  Receive Date: 20190410
  Receipt Date: 20190410
  Transmission Date: 20190711
  Serious: Yes (Hospitalization)
  Sender: FDA-Public Use
  Company Number: PHHY2019FR079307

PATIENT
  Age: 73 Year
  Sex: Female
  Weight: 61 kg

DRUGS (3)
  1. TEMESTA (LORAZEPAM) [Suspect]
     Active Substance: LORAZEPAM
     Indication: ANXIETY
     Dosage: 7.5 MG, UNK
     Route: 048
  2. VERATRAN [Suspect]
     Active Substance: CLOTIAZEPAM
     Indication: AGITATION
     Dosage: 20 MG, UNK
     Route: 048
  3. RISPERIDONE. [Suspect]
     Active Substance: RISPERIDONE
     Indication: AGITATION
     Dosage: 2 MG, UNK
     Route: 048

REACTIONS (2)
  - Hypothermia [Not Recovered/Not Resolved]
  - Catatonia [Not Recovered/Not Resolved]

NARRATIVE: CASE EVENT DATE: 20190304
